FAERS Safety Report 7812781-5 (Version None)
Quarter: 2011Q4

REPORT INFORMATION
  Report Type: 
  Country: None (occurrence: None)
  Receive Date: 20111011
  Receipt Date: 20110926
  Transmission Date: 20120403
  Serious: Yes (Disabling, Other)
  Sender: FDA-Public Use
  Company Number: FR-1188219

PATIENT
  Sex: Female

DRUGS (1)
  1. AZOPT [Suspect]
     Indication: GLAUCOMA
     Dosage: (1 GTT BID OPHTHALMIC)
     Route: 047
     Dates: start: 20100520, end: 20110315

REACTIONS (1)
  - DEAFNESS TRANSITORY [None]
